FAERS Safety Report 4703521-7 (Version None)
Quarter: 2005Q2

REPORT INFORMATION
  Report Type: 
  Country: None (occurrence: None)
  Receive Date: 20050630
  Receipt Date: 20050627
  Transmission Date: 20051028
  Serious: Yes (Hospitalization, Disabling)
  Sender: FDA-Public Use
  Company Number: BR-BOEHRINGER INGELHEIM PHARMACEUTICALS, INC.-2005-BP-10826BR

PATIENT
  Age: 84 Year
  Sex: Female

DRUGS (2)
  1. SPIRIVA [Suspect]
     Indication: CHRONIC OBSTRUCTIVE PULMONARY DISEASE
     Route: 055
     Dates: start: 20050604, end: 20050616
  2. ATROVENT [Concomitant]
     Route: 055

REACTIONS (5)
  - CONFUSIONAL STATE [None]
  - DELIRIUM [None]
  - INSOMNIA [None]
  - PSYCHOMOTOR AGITATION [None]
  - RESPIRATORY FAILURE [None]
